FAERS Safety Report 21048020 (Version 1)
Quarter: 2022Q3

REPORT INFORMATION
  Report Type: Spontaneous
  Country: US (occurrence: None)
  Receive Date: 20220705
  Receipt Date: 20220705
  Transmission Date: 20221026
  Serious: No
  Sender: FDA-Public Use
  Company Number: None

PATIENT
  Age: 69 Year
  Sex: Female
  Weight: 127.01 kg

DRUGS (6)
  1. ASMANEX HFA [Suspect]
     Active Substance: MOMETASONE FUROATE
  2. FLOVENT [Suspect]
     Active Substance: FLUTICASONE PROPIONATE
  3. LEVOTHYROXINE [Concomitant]
     Active Substance: LEVOTHYROXINE
  4. MONTELUKAST [Concomitant]
  5. DAILY MULTIVITAMIN [Concomitant]
  6. BIOTIN [Concomitant]
     Active Substance: BIOTIN

REACTIONS (3)
  - Device ineffective [None]
  - Aphonia [None]
  - Dose calculation error [None]

NARRATIVE: CASE EVENT DATE: 20220404
